FAERS Safety Report 8152974-3 (Version None)
Quarter: 2012Q1

REPORT INFORMATION
  Report Type: 
  Country: None (occurrence: None)
  Receive Date: 20120103
  Receipt Date: 20111027
  Transmission Date: 20120608
  Serious: No
  Sender: FDA-Public Use
  Company Number: AE-2011-002808

PATIENT
  Age: 59 Year
  Sex: Female
  Weight: 63.9572 kg

DRUGS (4)
  1. INCIVEK [Suspect]
     Dosage: (2 DOSAGE FORMS),ORAL
     Route: 048
     Dates: start: 20110920, end: 20111026
  2. RIBAVIRIN [Concomitant]
  3. PEGASYS [Concomitant]
  4. RELAFEN [Concomitant]

REACTIONS (1)
  - RASH PRURITIC [None]
